FAERS Safety Report 16062467 (Version 3)
Quarter: 2019Q2

REPORT INFORMATION
  Report Type: Spontaneous
  Country: US (occurrence: US)
  Receive Date: 20190312
  Receipt Date: 20190502
  Transmission Date: 20190711
  Serious: No
  Sender: FDA-Public Use
  Company Number: US-SA-2019SA066352

PATIENT
  Age: 79 Year
  Sex: Female

DRUGS (1)
  1. SOLIQUA 100/33 [Suspect]
     Active Substance: INSULIN GLARGINE\LIXISENATIDE
     Dosage: 30 TO 35 UNITS DAILY
     Route: 065

REACTIONS (3)
  - Blood pressure abnormal [Unknown]
  - Device operational issue [Unknown]
  - Blood glucose abnormal [Unknown]
